FAERS Safety Report 11673378 (Version 1)
Quarter: 2015Q4

REPORT INFORMATION
  Report Type: Spontaneous
  Country: US (occurrence: US)
  Receive Date: 20151027
  Receipt Date: 20151027
  Transmission Date: 20160304
  Serious: No
  Sender: FDA-Public Use
  Company Number: US-ELI_LILLY_AND_COMPANY-US201005007146

PATIENT
  Sex: Female

DRUGS (2)
  1. FORTEO [Suspect]
     Active Substance: TERIPARATIDE
     Indication: OSTEOPOROSIS
     Dosage: 20 UG, DAILY (1/D)
     Dates: start: 200906
  2. TEGRETOL [Concomitant]
     Active Substance: CARBAMAZEPINE
     Indication: SEIZURE

REACTIONS (6)
  - Lyme disease [Unknown]
  - Malaise [Recovered/Resolved]
  - Body temperature increased [Recovered/Resolved]
  - Asthenia [Recovered/Resolved]
  - Arthropod bite [Not Recovered/Not Resolved]
  - Pain [Recovered/Resolved]
